FAERS Safety Report 20854686 (Version 3)
Quarter: 2022Q3

REPORT INFORMATION
  Report Type: Report from Study
  Country: US (occurrence: US)
  Receive Date: 20220520
  Receipt Date: 20220812
  Transmission Date: 20221026
  Serious: Yes (Other)
  Sender: FDA-Public Use
  Company Number: US-NOVARTISTESTPH-NVSC2022US116386

PATIENT
  Sex: Female
  Weight: 63.492 kg

DRUGS (3)
  1. TREPROSTINIL [Suspect]
     Active Substance: TREPROSTINIL
     Indication: Pulmonary arterial hypertension
     Dosage: 49 NG/KG/MIN, CONT
     Route: 042
     Dates: start: 20211018
  2. TREPROSTINIL [Suspect]
     Active Substance: TREPROSTINIL
     Dosage: 54 NG/KG/MIN, CONT
     Route: 042
  3. OPSUMIT [Concomitant]
     Active Substance: MACITENTAN
     Indication: Product used for unknown indication
     Dosage: UNK
     Route: 065

REACTIONS (6)
  - Systemic lupus erythematosus [Unknown]
  - Raynaud^s phenomenon [Unknown]
  - Chest discomfort [Unknown]
  - Dyspnoea [Unknown]
  - Nausea [Unknown]
  - Dizziness [Unknown]
